FAERS Safety Report 7386556 (Version 4)
Quarter: 2012Q4

REPORT INFORMATION
  Report Type: 
  Country: US (occurrence: US)
  Receive Date: 20100513
  Receipt Date: 20121105
  Transmission Date: 20130627
  Serious: Yes (Hospitalization, Other)
  Sender: FDA-Public Use
  Company Number: PHEH2010US03443

PATIENT
  Age: 7 Year
  Sex: Female

DRUGS (1)
  1. TEGRETOL [Suspect]
     Indication: CONVULSION
     Dosage: 200 mg, BID
     Dates: start: 20050312

REACTIONS (42)
  - Urinary tract infection [Unknown]
  - Hepatic failure [Unknown]
  - Hepatitis [Unknown]
  - Abdominal pain [Unknown]
  - Pyrexia [Unknown]
  - Toxic epidermal necrolysis [Unknown]
  - Stevens-Johnson syndrome [Unknown]
  - Injury [Unknown]
  - Deformity [Unknown]
  - Pain [Unknown]
  - Mental disorder [Unknown]
  - Anhedonia [Unknown]
  - Disability [Unknown]
  - Anxiety [Unknown]
  - Decreased interest [Unknown]
  - Rash [Unknown]
  - Pruritus [Unknown]
  - Skin discolouration [Unknown]
  - Skin exfoliation [Unknown]
  - Alopecia [Unknown]
  - Nail disorder [Unknown]
  - Pigmentation disorder [Unknown]
  - Urticaria [Unknown]
  - Swelling [Unknown]
  - Skin lesion [Unknown]
  - Skin burning sensation [Unknown]
  - Mucous membrane disorder [Unknown]
  - Scar [Unknown]
  - Blindness [Unknown]
  - Internal injury [Unknown]
  - Hypersensitivity [Unknown]
  - Viral infection [Unknown]
  - Agranulocytosis [Unknown]
  - Oral candidiasis [Unknown]
  - Anaemia [Unknown]
  - Dermatitis [Unknown]
  - Nephritis [Unknown]
  - Nephropathy [Unknown]
  - Hepatomegaly [Unknown]
  - Lethargy [Unknown]
  - Vomiting [Unknown]
  - Liver function test abnormal [Unknown]
